FAERS Safety Report 7494778-0 (Version None)
Quarter: 2011Q2

REPORT INFORMATION
  Report Type: 
  Country: None (occurrence: None)
  Receive Date: 20110520
  Receipt Date: 20110510
  Transmission Date: 20111010
  Serious: Yes (Death, Hospitalization)
  Sender: FDA-Public Use
  Company Number: A0790863A

PATIENT
  Age: 47 Year
  Sex: Male
  Weight: 102.7 kg

DRUGS (1)
  1. AVANDIA [Suspect]
     Dosage: 4MG TWICE PER DAY
     Route: 048
     Dates: start: 20030723, end: 20070501

REACTIONS (12)
  - ACUTE CORONARY SYNDROME [None]
  - BRAIN DEATH [None]
  - CORONARY ARTERY DISEASE [None]
  - CEREBROVASCULAR ACCIDENT [None]
  - CARDIOGENIC SHOCK [None]
  - CARDIAC ARREST [None]
  - CARDIAC FAILURE CONGESTIVE [None]
  - SHOCK [None]
  - COAGULOPATHY [None]
  - PULSELESS ELECTRICAL ACTIVITY [None]
  - MYOCARDIAL INFARCTION [None]
  - HAEMORRHAGE [None]
